FAERS Safety Report 15345220 (Version 1)
Quarter: 2018Q3

REPORT INFORMATION
  Report Type: Spontaneous
  Country: FR (occurrence: FR)
  Receive Date: 20180903
  Receipt Date: 20180903
  Transmission Date: 20181010
  Serious: Yes (Other)
  Sender: FDA-Public Use
  Company Number: PHHY2018FR087100

PATIENT
  Sex: Male

DRUGS (2)
  1. ESTRADIOL. [Suspect]
     Active Substance: ESTRADIOL
     Indication: GENDER REASSIGNMENT THERAPY
     Dosage: UNK
     Route: 065
  2. CYPROTERONE [Concomitant]
     Active Substance: CYPROTERONE
     Indication: GENDER REASSIGNMENT THERAPY
     Dosage: 1 DF, QD 50 TO 100 MG DAILY FOR 2 TO 3 MONTHS
     Route: 065

REACTIONS (2)
  - Off label use [Unknown]
  - Breast cancer [Unknown]
